FAERS Safety Report 22346184 (Version 1)
Quarter: 2023Q2

REPORT INFORMATION
  Report Type: Report from Study
  Country: US (occurrence: US)
  Receive Date: 20230519
  Receipt Date: 20230519
  Transmission Date: 20230722
  Serious: Yes (Other)
  Sender: FDA-Public Use
  Company Number: US-BAYER-2023A039619

PATIENT
  Age: 74 Year
  Sex: Female

DRUGS (2)
  1. STIVARGA [Suspect]
     Active Substance: REGORAFENIB
     Dosage: 160 MG, QD  21 DAYS ON AND 7 DAYS OFF.
  2. STIVARGA [Suspect]
     Active Substance: REGORAFENIB
     Dosage: DOSE REDUCED

REACTIONS (6)
  - Atrial fibrillation [None]
  - Product dose omission issue [Not Recovered/Not Resolved]
  - Abdominal pain upper [None]
  - Asthenia [None]
  - Blood potassium decreased [Not Recovered/Not Resolved]
  - Asthenia [Not Recovered/Not Resolved]

NARRATIVE: CASE EVENT DATE: 20230324
